FAERS Safety Report 5283213-9 (Version None)
Quarter: 2007Q2

REPORT INFORMATION
  Report Type: 
  Country: None (occurrence: None)
  Receive Date: 20070402
  Receipt Date: 20070326
  Transmission Date: 20071010
  Serious: Yes (Other)
  Sender: FDA-Public Use
  Company Number: NL-GLAXOSMITHKLINE-B0461685A

PATIENT
  Age: 21 Year
  Sex: Female
  Weight: 60 kg

DRUGS (2)
  1. PAROXETINE HCL [Suspect]
     Indication: PHOBIA
     Dosage: 20MG PER DAY
     Route: 048
     Dates: start: 20030101
  2. MICROGYNON [Suspect]
     Indication: CONTRACEPTION
     Route: 048
     Dates: start: 20020101

REACTIONS (3)
  - ABORTION SPONTANEOUS [None]
  - DRUG INTERACTION [None]
  - PREGNANCY ON ORAL CONTRACEPTIVE [None]
